FAERS Safety Report 10611169 (Version 4)
Quarter: 2015Q1

REPORT INFORMATION
  Report Type: Spontaneous
  Country: CH (occurrence: None)
  Receive Date: 20141124
  Receipt Date: 20150106
  Transmission Date: 20150720
  Serious: Yes (Life-Threatening)
  Sender: FDA-Public Use
  Company Number: 20140737

PATIENT
  Age: 84 Year
  Sex: Male
  Weight: 95 kg

DRUGS (8)
  1. CARBAMAZEPINE (CARBAMEZEPINE) [Concomitant]
  2. LEVETIRACETAM. [Concomitant]
     Active Substance: LEVETIRACETAM
  3. TAMSULOSIN [Concomitant]
     Active Substance: TAMSULOSIN
  4. NADROPARIN [Concomitant]
     Active Substance: NADROPARIN
  5. VENOFER [Suspect]
     Active Substance: IRON SUCROSE
     Indication: HAEMOGLOBIN DECREASED
     Route: 041
     Dates: start: 20141105, end: 20141105
  6. ACENOCOUMAROL (ACENOCOUMAROL) [Concomitant]
  7. FUROSEMIDE. [Concomitant]
     Active Substance: FUROSEMIDE
  8. HALOPERIDOL. [Concomitant]
     Active Substance: HALOPERIDOL

REACTIONS (2)
  - Eye movement disorder [None]
  - Coma [None]

NARRATIVE: CASE EVENT DATE: 20141105
